FAERS Safety Report 19110673 (Version 2)
Quarter: 2022Q1

REPORT INFORMATION
  Report Type: Spontaneous
  Country: US (occurrence: None)
  Receive Date: 20210408
  Receipt Date: 20220105
  Transmission Date: 20220423
  Serious: Yes (Other)
  Sender: FDA-Public Use
  Company Number: 2021A263108

PATIENT
  Sex: Female

DRUGS (1)
  1. CALQUENCE [Suspect]
     Active Substance: ACALABRUTINIB
     Indication: Mantle cell lymphoma
     Route: 048

REACTIONS (10)
  - White blood cell count increased [Recovering/Resolving]
  - Red blood cell count abnormal [Unknown]
  - Dyspnoea [Unknown]
  - Limb discomfort [Unknown]
  - Paraesthesia [Unknown]
  - Arthralgia [Unknown]
  - Myalgia [Unknown]
  - Headache [Unknown]
  - Bone pain [Recovered/Resolved]
  - Neutropenia [Recovered/Resolved]
